FAERS Safety Report 12421419 (Version 1)
Quarter: 2016Q2

REPORT INFORMATION
  Report Type: Spontaneous
  Country: DE (occurrence: DE)
  Receive Date: 20160531
  Receipt Date: 20160531
  Transmission Date: 20160815
  Serious: Yes (Other)
  Sender: FDA-Public Use
  Company Number: DE-BAYER-2016-098792

PATIENT
  Age: 81 Year
  Sex: Female

DRUGS (4)
  1. SORAFENIB (RAF KINASE INHIBITOR) [Suspect]
     Active Substance: SORAFENIB
     Indication: ACUTE LYMPHOCYTIC LEUKAEMIA
     Dosage: UNK
     Dates: start: 201601, end: 201604
  2. VINCRISTINE [Concomitant]
     Active Substance: VINCRISTINE
     Dosage: 1 MG D2
     Dates: start: 20160428
  3. DEXAMETHASONE [DEXAMETHASONE] [Concomitant]
     Dosage: 20 MG D1-3
     Dates: start: 20160428
  4. CYCLOPHOSPHAMIDE. [Concomitant]
     Active Substance: CYCLOPHOSPHAMIDE
     Dosage: 360 MG D2-3
     Dates: start: 20160428

REACTIONS (1)
  - Acute lymphocytic leukaemia recurrent [None]

NARRATIVE: CASE EVENT DATE: 201604
